FAERS Safety Report 5124604-6 (Version None)
Quarter: 2006Q4

REPORT INFORMATION
  Report Type: 
  Country: None (occurrence: None)
  Receive Date: 20061011
  Receipt Date: 20061002
  Transmission Date: 20070319
  Serious: Yes (Other)
  Sender: FDA-Public Use
  Company Number: FR-JNJFOC-20061001387

PATIENT
  Age: 50 Year
  Sex: Female

DRUGS (3)
  1. RISPERDAL CONSTA [Suspect]
     Indication: PSYCHOTIC DISORDER
     Route: 030
  2. RISPERDAL [Concomitant]
     Route: 048
  3. HALDOL [Concomitant]
     Route: 048

REACTIONS (2)
  - LEUKOPENIA [None]
  - SUICIDAL IDEATION [None]
